FAERS Safety Report 5803851-1 (Version None)
Quarter: 2008Q3

REPORT INFORMATION
  Report Type: 
  Country: None (occurrence: None)
  Receive Date: 20080708
  Receipt Date: 20080704
  Transmission Date: 20090109
  Serious: Yes (Life-Threatening)
  Sender: FDA-Public Use
  Company Number: PH-BOEHRINGER INGELHEIM GMBH, GERMANY-2007-BP-24889BP

PATIENT
  Sex: Female
  Weight: 53 kg

DRUGS (2)
  1. PRAMIPEXOLE ER [Suspect]
     Indication: PARKINSON'S DISEASE
     Route: 048
     Dates: start: 20071019, end: 20071118
  2. LEXAPRO [Concomitant]
     Indication: DEPRESSION
     Route: 048
     Dates: start: 20070701

REACTIONS (3)
  - ANOREXIA [None]
  - DEPRESSED LEVEL OF CONSCIOUSNESS [None]
  - HYPOTENSION [None]
